FAERS Safety Report 5881916-6 (Version None)
Quarter: 2008Q3

REPORT INFORMATION
  Report Type: 
  Country: None (occurrence: None)
  Receive Date: 20080912
  Receipt Date: 20080716
  Transmission Date: 20090109
  Serious: No
  Sender: FDA-Public Use
  Company Number: US-ABBOTT-08P-163-0463848-00

PATIENT
  Sex: Female
  Weight: 77.18 kg

DRUGS (5)
  1. HUMIRA [Suspect]
     Indication: CROHN'S DISEASE
     Dosage: ONE PEN EVERY TWO WEEKS
     Route: 050
     Dates: start: 20080101
  2. MESALAMINE [Concomitant]
     Indication: CROHN'S DISEASE
     Dosage: TWO PILLS THREE TIMES A DAY
     Route: 048
  3. PROBIOTICS [Concomitant]
     Indication: DRUG USE FOR UNKNOWN INDICATION
  4. BIRTH CONTROL [Concomitant]
     Indication: CONTRACEPTION
  5. CALCIUM D3 [Concomitant]
     Indication: DRUG USE FOR UNKNOWN INDICATION

REACTIONS (3)
  - ACCIDENTAL EXPOSURE [None]
  - INJECTION SITE HAEMORRHAGE [None]
  - INJECTION SITE PAIN [None]
